FAERS Safety Report 13402259 (Version 1)
Quarter: 2017Q2

REPORT INFORMATION
  Report Type: Spontaneous
  Country: US (occurrence: US)
  Receive Date: 20170404
  Receipt Date: 20170404
  Transmission Date: 20170830
  Serious: No
  Sender: FDA-Public Use
  Company Number: US-BAYER-2017-056272

PATIENT
  Age: 65 Year
  Sex: Female
  Weight: 52 kg

DRUGS (4)
  1. MIRAFIBER CAPLETS [Suspect]
     Active Substance: CITRIC ACID MONOHYDRATE\METHYLCELLULOSE
     Dosage: 2 DF, UNK
     Route: 048
  2. MIRALAX [Suspect]
     Active Substance: POLYETHYLENE GLYCOL 3350
     Indication: GASTROINTESTINAL DISORDER
     Dosage: UNK,17G DISSOLVED IN WATER DOSE
     Route: 048
  3. MIRALAX [Suspect]
     Active Substance: POLYETHYLENE GLYCOL 3350
     Indication: CONSTIPATION
  4. MIRAFIBER POWDER [Suspect]
     Active Substance: METHYLCELLULOSES
     Dosage: UNK,1 TABLESPOON WITH 8 OZ OF WATER DAILY. DOSE
     Route: 048
     Dates: start: 20161030, end: 201612

REACTIONS (4)
  - Wrong technique in product usage process [Unknown]
  - Drug ineffective [Unknown]
  - Foreign body [Unknown]
  - Dysgeusia [None]
